FAERS Safety Report 4399841-9 (Version None)
Quarter: 2004Q3

REPORT INFORMATION
  Report Type: 
  Country: None (occurrence: None)
  Receive Date: 20040714
  Receipt Date: 20040625
  Transmission Date: 20050211
  Serious: Yes (Life-Threatening)
  Sender: FDA-Public Use
  Company Number: JP_040603612

PATIENT
  Age: 67 Year
  Sex: Female
  Weight: 59 kg

DRUGS (5)
  1. ONCOVIN [Suspect]
     Indication: CERVIX CARCINOMA
     Dosage: 1 MG OTHER
     Route: 050
     Dates: start: 20031202, end: 20040322
  2. BLEOMYCIN [Concomitant]
  3. CISPLATIN [Concomitant]
  4. MITOMYCIN-C BULK POWDER [Concomitant]
  5. PARAPLATIN [Concomitant]

REACTIONS (3)
  - ACQUIRED DIAPHRAGMATIC EVENTRATION [None]
  - INTERSTITIAL LUNG DISEASE [None]
  - RENAL IMPAIRMENT [None]
